FAERS Safety Report 4639996-1 (Version None)
Quarter: 2005Q2

REPORT INFORMATION
  Report Type: 
  Country: None (occurrence: None)
  Receive Date: 20050420
  Receipt Date: 20050117
  Transmission Date: 20051028
  Serious: Yes (Other)
  Sender: FDA-Public Use
  Company Number: 200510186JP

PATIENT
  Age: 27 Year
  Sex: Male
  Weight: 59 kg

DRUGS (1)
  1. KETEK [Suspect]
     Indication: DENTAL CARIES
     Route: 048
     Dates: start: 20041112, end: 20041114

REACTIONS (3)
  - FEELING ABNORMAL [None]
  - SOMNOLENCE [None]
  - VISION BLURRED [None]
